FAERS Safety Report 15941443 (Version 3)
Quarter: 2019Q3

REPORT INFORMATION
  Report Type: Spontaneous
  Country: US (occurrence: US)
  Receive Date: 20190208
  Receipt Date: 20190729
  Transmission Date: 20191004
  Serious: Yes (Other)
  Sender: FDA-Public Use
  Company Number: US-ASTRAZENECA-2019SE09694

PATIENT
  Age: 54 Year
  Sex: Female
  Weight: 91.2 kg

DRUGS (29)
  1. AFLURIA NOS [Concomitant]
     Active Substance: INFLUENZA VIRUS VACCINE TRIVALENT TYPE A+B AFLURIA
  2. CEPHALEXIN. [Concomitant]
     Active Substance: CEPHALEXIN
  3. OXYCODONE [Concomitant]
     Active Substance: OXYCODONE
  4. CRESTOR [Concomitant]
     Active Substance: ROSUVASTATIN CALCIUM
  5. ABILIFY [Concomitant]
     Active Substance: ARIPIPRAZOLE
  6. DIAZEPAM. [Concomitant]
     Active Substance: DIAZEPAM
  7. IBUPROFEN. [Concomitant]
     Active Substance: IBUPROFEN
  8. ALPRAZOLAM. [Concomitant]
     Active Substance: ALPRAZOLAM
  9. CLONAZEPAM. [Concomitant]
     Active Substance: CLONAZEPAM
  10. LAMOTRIGINE. [Concomitant]
     Active Substance: LAMOTRIGINE
  11. JANUVIA [Concomitant]
     Active Substance: SITAGLIPTIN PHOSPHATE
     Indication: DIABETES MELLITUS
  12. NITROFURANTOIN. [Concomitant]
     Active Substance: NITROFURANTOIN
  13. SODIUM BICARBONATE. [Concomitant]
     Active Substance: SODIUM BICARBONATE
  14. LAMOTRIGINE. [Concomitant]
     Active Substance: LAMOTRIGINE
     Indication: BIPOLAR DISORDER
  15. NEXIUM [Suspect]
     Active Substance: ESOMEPRAZOLE MAGNESIUM
     Indication: GASTROOESOPHAGEAL REFLUX DISEASE
     Dosage: 40.0MG UNKNOWN
     Route: 048
     Dates: start: 1990
  16. ROSUVASTATIN. [Concomitant]
     Active Substance: ROSUVASTATIN
     Indication: BLOOD CHOLESTEROL INCREASED
  17. ARIPIPRAZOLE. [Concomitant]
     Active Substance: ARIPIPRAZOLE
  18. CLONAZEPAM. [Concomitant]
     Active Substance: CLONAZEPAM
  19. HYDROCODON-ACETAMINOPHEN [Concomitant]
     Active Substance: ACETAMINOPHEN\HYDROCODONE
  20. METOPROLOL. [Concomitant]
     Active Substance: METOPROLOL
     Indication: DIABETES MELLITUS
  21. LISINOPRIL. [Concomitant]
     Active Substance: LISINOPRIL
     Indication: HYPERTENSION
  22. GLIPIZIDE. [Concomitant]
     Active Substance: GLIPIZIDE
  23. TEMAZEPAM. [Concomitant]
     Active Substance: TEMAZEPAM
     Indication: INSOMNIA
  24. AMLODIPINE BESYLATE. [Concomitant]
     Active Substance: AMLODIPINE BESYLATE
     Indication: HYPERTENSION
  25. METFORMIN [Concomitant]
     Active Substance: METFORMIN HYDROCHLORIDE
     Indication: BIPOLAR DISORDER
  26. BENZONATATE. [Concomitant]
     Active Substance: BENZONATATE
  27. NEXIUM [Suspect]
     Active Substance: ESOMEPRAZOLE MAGNESIUM
     Indication: GASTROOESOPHAGEAL REFLUX DISEASE
     Dosage: 40.0MG UNKNOWN
     Route: 048
     Dates: start: 20130522
  28. ZOLPIDEM [Concomitant]
     Active Substance: ZOLPIDEM TARTRATE
  29. TRAZODONE [Concomitant]
     Active Substance: TRAZODONE HYDROCHLORIDE
     Indication: DEPRESSION

REACTIONS (6)
  - Renal failure [Unknown]
  - Rebound acid hypersecretion [Unknown]
  - Renal impairment [Unknown]
  - Renal injury [Unknown]
  - Chronic kidney disease [Not Recovered/Not Resolved]
  - Tubulointerstitial nephritis [Unknown]

NARRATIVE: CASE EVENT DATE: 2017
